FAERS Safety Report 9881806 (Version 2)
Quarter: 2014Q1

REPORT INFORMATION
  Report Type: Spontaneous
  Country: US (occurrence: US)
  Receive Date: 20140207
  Receipt Date: 20140324
  Transmission Date: 20141002
  Serious: Yes (Other)
  Sender: FDA-Public Use
  Company Number: US-PFIZER INC-2014035446

PATIENT
  Age: 82 Year
  Sex: Female
  Weight: 39.91 kg

DRUGS (3)
  1. CHANTIX [Suspect]
     Indication: SMOKING CESSATION THERAPY
     Dosage: UNK (FIRST TIME)
  2. CHANTIX [Suspect]
     Dosage: UNK (SECOND TIME)
  3. CHANTIX [Suspect]
     Dosage: UNK (THIRD TIME)

REACTIONS (2)
  - Lung neoplasm malignant [Unknown]
  - Insomnia [Unknown]
